FAERS Safety Report 9336317 (Version 2)
Quarter: 2013Q3

REPORT INFORMATION
  Report Type: Spontaneous
  Country: ES (occurrence: ES)
  Receive Date: 20130607
  Receipt Date: 20130726
  Transmission Date: 20140515
  Serious: Yes (Hospitalization)
  Sender: FDA-Public Use
  Company Number: ES-JNJFOC-20130603090

PATIENT
  Age: 83 Year
  Sex: Male
  Weight: 80 kg

DRUGS (8)
  1. XARELTO [Suspect]
     Indication: CEREBROVASCULAR ACCIDENT PROPHYLAXIS
     Route: 048
     Dates: start: 20130207
  2. XARELTO [Suspect]
     Indication: ATRIAL FIBRILLATION
     Route: 048
     Dates: start: 20130207
  3. FUROSEMIDE [Concomitant]
     Indication: CARDIAC FAILURE
     Route: 048
  4. SPIRONOLACTONE [Concomitant]
     Indication: CARDIAC FAILURE
     Route: 048
  5. RAMIPRIL [Concomitant]
     Indication: CARDIAC FAILURE
     Route: 065
  6. BISOPROLOL [Concomitant]
     Indication: CARDIAC FAILURE
     Route: 065
  7. ATORVASTATIN [Concomitant]
     Indication: HYPERCHOLESTEROLAEMIA
     Route: 065
  8. OMEPRAZOLE [Concomitant]
     Route: 065

REACTIONS (1)
  - Deep vein thrombosis [Recovered/Resolved with Sequelae]
